FAERS Safety Report 14426352 (Version 6)
Quarter: 2019Q3

REPORT INFORMATION
  Report Type: Report from Study
  Country: JP (occurrence: JP)
  Receive Date: 20180123
  Receipt Date: 20190719
  Transmission Date: 20191004
  Serious: Yes (Hospitalization)
  Sender: FDA-Public Use
  Company Number: PHJP2017JP026723

PATIENT
  Age: 10 Month
  Sex: Male

DRUGS (112)
  1. ILARIS [Suspect]
     Active Substance: CANAKINUMAB
     Dosage: 88.5 MG, UNK
     Route: 058
     Dates: start: 20181002
  2. MUCODYNE-DS [Concomitant]
     Active Substance: CARBOCYSTEINE
     Indication: PROPHYLAXIS
     Dosage: 150 MG, UNK
     Route: 048
     Dates: start: 20170620, end: 20170624
  3. MUCODYNE-DS [Concomitant]
     Active Substance: CARBOCYSTEINE
     Dosage: 210 MG, UNK
     Route: 048
     Dates: start: 20181023, end: 20181105
  4. MUCODYNE [Concomitant]
     Active Substance: CARBOCYSTEINE
     Dosage: 3.5 ML, UNK
     Route: 048
     Dates: start: 20170822, end: 20170904
  5. MUCODYNE [Concomitant]
     Active Substance: CARBOCYSTEINE
     Dosage: 4 ML, UNK
     Route: 048
     Dates: start: 20180219, end: 20180225
  6. MUCODYNE [Concomitant]
     Active Substance: CARBOCYSTEINE
     Dosage: 4 ML, UNK
     Route: 048
     Dates: start: 20180620, end: 20180703
  7. ASVERIN (TIPEPIDINE HIBENZATE) [Concomitant]
     Active Substance: TIPEPIDINE HIBENZATE
     Indication: UPPER RESPIRATORY TRACT INFLAMMATION
     Dosage: 3 ML, UNK
     Route: 048
     Dates: start: 20170721, end: 20170731
  8. ASVERIN (TIPEPIDINE HIBENZATE) [Concomitant]
     Active Substance: TIPEPIDINE HIBENZATE
     Dosage: 12 MG, UNK
     Route: 048
     Dates: start: 20180326, end: 20180401
  9. MEPTIN [Concomitant]
     Active Substance: PROCATEROL HYDROCHLORIDE
     Dosage: 1.5 ML, UNK
     Route: 048
     Dates: start: 20170918, end: 20171001
  10. MEPTIN [Concomitant]
     Active Substance: PROCATEROL HYDROCHLORIDE
     Dosage: 1.5 ML, UNK
     Route: 048
     Dates: start: 20170822, end: 20170904
  11. MEPTIN [Concomitant]
     Active Substance: PROCATEROL HYDROCHLORIDE
     Dosage: 2 ML, UNK
     Route: 048
     Dates: start: 20180219, end: 20180225
  12. ONON [Concomitant]
     Active Substance: PRANLUKAST
     Indication: PROPHYLAXIS
     Dosage: 20 MG, QD
     Route: 048
     Dates: start: 20170104, end: 20170117
  13. ONON [Concomitant]
     Active Substance: PRANLUKAST
     Indication: RESPIRATORY SYNCYTIAL VIRUS BRONCHIOLITIS
     Dosage: 35 MG, UNK
     Route: 048
     Dates: start: 20170721, end: 20170731
  14. RINDERON [Concomitant]
     Indication: RESPIRATORY SYNCYTIAL VIRUS BRONCHIOLITIS
     Dosage: 0.75 ML, QD
     Route: 048
     Dates: start: 20170108, end: 20170110
  15. RINDERON [Concomitant]
     Dosage: UNK
     Route: 048
     Dates: start: 20180219, end: 20180220
  16. RINDERON [Concomitant]
     Dosage: 8 ML, UNK
     Route: 048
     Dates: start: 20180620, end: 20180703
  17. CLARITH [Concomitant]
     Active Substance: CLARITHROMYCIN
     Indication: PROPHYLAXIS
     Dosage: 40 MG, UNK
     Route: 048
     Dates: start: 20171128
  18. BRUFEN [Concomitant]
     Active Substance: IBUPROFEN
     Dosage: 100 MG, UNK
     Route: 048
     Dates: start: 20180929, end: 20181002
  19. BRUFEN [Concomitant]
     Active Substance: IBUPROFEN
     Dosage: 100 MG, UNK
     Route: 048
     Dates: start: 20181104, end: 20181113
  20. ILARIS [Suspect]
     Active Substance: CANAKINUMAB
     Dosage: 36 MG, UNK
     Route: 058
     Dates: start: 20170829
  21. ILARIS [Suspect]
     Active Substance: CANAKINUMAB
     Dosage: 63 MG, UNK
     Route: 058
     Dates: start: 20180515
  22. ILARIS [Suspect]
     Active Substance: CANAKINUMAB
     Dosage: 84 MG, UNK
     Route: 058
     Dates: start: 20180904
  23. FLOMOX (CEFCAPENE PIVOXIL HYDROCHLORIDE) [Suspect]
     Active Substance: CEFCAPENE PIVOXIL HYDROCHLORIDE
     Indication: IMPETIGO
     Dosage: 50 MG, UNK
     Route: 048
     Dates: start: 20170801, end: 20170806
  24. BIOFERMIN R [Concomitant]
     Active Substance: DIETARY SUPPLEMENT\PROBIOTICS
     Dosage: 0.6 G, UNK
     Route: 048
     Dates: start: 20170918
  25. ALFAROL [Concomitant]
     Active Substance: ALFACALCIDOL
     Indication: PRODUCT USED FOR UNKNOWN INDICATION
     Dosage: 0.5 ML, UNK
     Route: 048
     Dates: end: 20170801
  26. MUCODYNE [Concomitant]
     Active Substance: CARBOCYSTEINE
     Dosage: 210 MG, UNK
     Route: 048
     Dates: start: 20180420, end: 20180502
  27. ASVERIN (TIPEPIDINE HIBENZATE) [Concomitant]
     Active Substance: TIPEPIDINE HIBENZATE
     Dosage: 12 MG, UNK
     Route: 048
     Dates: start: 20180503, end: 20180509
  28. ASVERIN (TIPEPIDINE HIBENZATE) [Concomitant]
     Active Substance: TIPEPIDINE HIBENZATE
     Dosage: 3 ML, UNK
     Route: 048
     Dates: start: 20180620, end: 20180703
  29. RINDERON [Concomitant]
     Dosage: UNK
     Route: 048
     Dates: start: 20171224, end: 20171226
  30. BANAN [Concomitant]
     Active Substance: CEFPODOXIME PROXETIL
     Indication: RESPIRATORY SYNCYTIAL VIRUS BRONCHIOLITIS
     Dosage: 27 MG, QD
     Route: 048
     Dates: start: 20170108, end: 20170110
  31. RINDERON VG [Concomitant]
     Active Substance: BETAMETHASONE VALERATE\GENTAMICIN SULFATE
     Indication: PROPHYLAXIS
     Dosage: 1 DF, UNK
     Route: 061
     Dates: start: 20180116, end: 20180122
  32. PULMICORT TURBUHALER [Concomitant]
     Active Substance: BUDESONIDE
     Indication: PROPHYLAXIS
     Dosage: 2 DF, UNK
     Route: 055
     Dates: start: 20170922
  33. FLOMOX (CEFCAPENE PIVOXIL HYDROCHLORIDE) [Suspect]
     Active Substance: CEFCAPENE PIVOXIL HYDROCHLORIDE
     Dosage: 60 MG, UNK
     Route: 048
     Dates: start: 20171105, end: 20171106
  34. PREVNAR 13 [Concomitant]
     Active Substance: PNEUMOCOCCAL 13-VALENT CONJUGATE VACCINE
     Indication: PROPHYLAXIS
     Dosage: 0.5 ML, QD
     Route: 058
     Dates: start: 20170123, end: 20170123
  35. SYNAGIS [Concomitant]
     Active Substance: PALIVIZUMAB
     Dosage: 100 MG, UNK
     Route: 030
     Dates: start: 20171017, end: 20171017
  36. HEPTAVAX [Concomitant]
     Indication: PROPHYLAXIS
     Dosage: 0.25 ML, UNK
     Route: 058
     Dates: start: 20170313, end: 20170313
  37. CLAFORAN [Concomitant]
     Active Substance: CEFOTAXIME SODIUM
     Indication: RESPIRATORY SYNCYTIAL VIRUS BRONCHIOLITIS
     Dosage: 300 MG, QD
     Route: 042
     Dates: start: 20170106, end: 20170108
  38. MUCODYNE [Concomitant]
     Active Substance: CARBOCYSTEINE
     Dosage: 210 MG, UNK
     Route: 048
     Dates: start: 20180326, end: 20180401
  39. ASVERIN (TIPEPIDINE HIBENZATE) [Concomitant]
     Active Substance: TIPEPIDINE HIBENZATE
     Indication: RESPIRATORY SYNCYTIAL VIRUS BRONCHIOLITIS
     Dosage: 1.2 ML, QD
     Route: 048
     Dates: start: 20170104, end: 20170117
  40. ASVERIN (TIPEPIDINE HIBENZATE) [Concomitant]
     Active Substance: TIPEPIDINE HIBENZATE
     Dosage: 3 ML, UNK
     Route: 048
     Dates: start: 20180219, end: 20180225
  41. ASVERIN (TIPEPIDINE HIBENZATE) [Concomitant]
     Active Substance: TIPEPIDINE HIBENZATE
     Dosage: 12 MG, UNK
     Route: 048
     Dates: start: 20180420, end: 20180502
  42. MEPTIN [Concomitant]
     Active Substance: PROCATEROL HYDROCHLORIDE
     Dosage: 2 ML, UNK
     Route: 048
     Dates: start: 20171226, end: 20180102
  43. RINDERON [Concomitant]
     Indication: UPPER RESPIRATORY TRACT INFLAMMATION
     Dosage: 2 ML, UNK
     Route: 048
     Dates: start: 20170726, end: 20170727
  44. BRUFEN [Concomitant]
     Active Substance: IBUPROFEN
     Dosage: 100 MG, UNK
     Route: 048
     Dates: start: 20181020, end: 20181023
  45. ILARIS [Suspect]
     Active Substance: CANAKINUMAB
     Dosage: 57 MG, UNK
     Route: 058
     Dates: start: 20180123
  46. FLOMOX (CEFCAPENE PIVOXIL HYDROCHLORIDE) [Suspect]
     Active Substance: CEFCAPENE PIVOXIL HYDROCHLORIDE
     Indication: UPPER RESPIRATORY TRACT INFLAMMATION
     Dosage: 54 MG, UNK
     Route: 048
     Dates: start: 20170822, end: 20170824
  47. PREVNAR 13 [Concomitant]
     Active Substance: PNEUMOCOCCAL 13-VALENT CONJUGATE VACCINE
     Dosage: 0.5 ML, QD
     Route: 058
     Dates: start: 20170227, end: 20170227
  48. HB VACCINE [Concomitant]
     Indication: PROPHYLAXIS
     Dosage: 0.25 ML, UNK
     Route: 058
     Dates: start: 20170130, end: 20170130
  49. SYNAGIS [Concomitant]
     Active Substance: PALIVIZUMAB
     Dosage: 100 MG, UNK
     Route: 030
     Dates: start: 20171128, end: 20171128
  50. PREDNISOLONE. [Concomitant]
     Active Substance: PREDNISOLONE
     Indication: CHRONIC INFANTILE NEUROLOGICAL CUTANEOUS AND ARTICULAR SYNDROME
     Dosage: UNK
     Route: 048
     Dates: start: 20161129, end: 20170110
  51. ASVERIN (TIPEPIDINE HIBENZATE) [Concomitant]
     Active Substance: TIPEPIDINE HIBENZATE
     Indication: PROPHYLAXIS
     Dosage: 6 MG, UNK
     Route: 048
     Dates: start: 20170620, end: 20170624
  52. MUCODYNE [Concomitant]
     Active Substance: CARBOCYSTEINE
     Indication: RESPIRATORY SYNCYTIAL VIRUS BRONCHIOLITIS
     Dosage: 1.8 ML, QD
     Route: 048
     Dates: start: 20170104, end: 20170117
  53. ASVERIN (TIPEPIDINE HIBENZATE) [Concomitant]
     Active Substance: TIPEPIDINE HIBENZATE
     Dosage: 1.5 ML, UNK
     Route: 048
     Dates: start: 20170822, end: 20170904
  54. ROCEPHIN [Concomitant]
     Active Substance: CEFTRIAXONE SODIUM
     Indication: PYREXIA
     Dosage: 210 MG, UNK
     Route: 042
     Dates: start: 20170301, end: 20170301
  55. BRUFEN [Concomitant]
     Active Substance: IBUPROFEN
     Dosage: 100 MG, UNK
     Route: 048
     Dates: start: 20180511, end: 20180515
  56. BRUFEN [Concomitant]
     Active Substance: IBUPROFEN
     Dosage: 100 MG, UNK
     Route: 048
     Dates: start: 20180620, end: 20180710
  57. BRUFEN [Concomitant]
     Active Substance: IBUPROFEN
     Dosage: 100 MG, UNK
     Route: 048
     Dates: start: 20180804, end: 20180807
  58. ILARIS [Suspect]
     Active Substance: CANAKINUMAB
     Dosage: 34.5 MG, UNK
     Route: 058
     Dates: start: 20170704
  59. ILARIS [Suspect]
     Active Substance: CANAKINUMAB
     Dosage: 60 MG, UNK
     Route: 058
     Dates: start: 20180320
  60. ILARIS [Suspect]
     Active Substance: CANAKINUMAB
     Dosage: 61.5 MG, UNK
     Route: 058
     Dates: start: 20180417
  61. ILARIS [Suspect]
     Active Substance: CANAKINUMAB
     Dosage: 84 MG, UNK
     Route: 058
     Dates: start: 20180710
  62. ILARIS [Suspect]
     Active Substance: CANAKINUMAB
     Dosage: 84 MG, UNK
     Route: 058
     Dates: start: 20180807
  63. FLOMOX (CEFCAPENE PIVOXIL HYDROCHLORIDE) [Suspect]
     Active Substance: CEFCAPENE PIVOXIL HYDROCHLORIDE
     Dosage: 60 MG, UNK
     Route: 048
     Dates: start: 20171017, end: 20171026
  64. SYNAGIS [Concomitant]
     Active Substance: PALIVIZUMAB
     Indication: PROPHYLAXIS
     Dosage: 50 MG, UNK
     Route: 030
     Dates: start: 20161226, end: 20161226
  65. SYNAGIS [Concomitant]
     Active Substance: PALIVIZUMAB
     Dosage: 65 MG, UNK
     Route: 030
     Dates: start: 20170307, end: 20170307
  66. BIOFERMIN R [Concomitant]
     Active Substance: DIETARY SUPPLEMENT\PROBIOTICS
     Indication: PROPHYLAXIS
     Dosage: 0.5 G, UNK
     Route: 048
     Dates: start: 20170301, end: 20170306
  67. PREDNISOLONE. [Concomitant]
     Active Substance: PREDNISOLONE
     Dosage: 1.5 MG, UNK
     Route: 048
     Dates: start: 20161221, end: 20161227
  68. MUCODYNE [Concomitant]
     Active Substance: CARBOCYSTEINE
     Dosage: 3 ML, UNK
     Route: 048
     Dates: start: 20170721, end: 20170731
  69. MUCODYNE [Concomitant]
     Active Substance: CARBOCYSTEINE
     Dosage: 3.5 ML, UNK
     Route: 048
     Dates: start: 20170918, end: 20171001
  70. MUCODYNE [Concomitant]
     Active Substance: CARBOCYSTEINE
     Dosage: 4 ML, UNK
     Route: 048
     Dates: start: 20171121, end: 20171211
  71. ASVERIN (TIPEPIDINE HIBENZATE) [Concomitant]
     Active Substance: TIPEPIDINE HIBENZATE
     Dosage: 2 ML, UNK
     Route: 048
     Dates: start: 20171121, end: 20171211
  72. MEPTIN [Concomitant]
     Active Substance: PROCATEROL HYDROCHLORIDE
     Dosage: 1.5 ML, UNK
     Route: 048
     Dates: start: 20170822, end: 20170904
  73. RINDERON [Concomitant]
     Dosage: 6 ML, UNK
     Route: 048
     Dates: start: 20180220, end: 20180221
  74. RINDERON [Concomitant]
     Dosage: 8 ML, UNK
     Route: 048
     Dates: start: 20181023, end: 20181025
  75. ACTHIB [Concomitant]
     Active Substance: HAEMOPHILUS B CONJUGATE VACCINE (TETANUS TOXOID CONJUGATE)\HAEMOPHILUS INFLUENZAE TYPE B STRAIN 1482 CAPSULAR POLYSACCHARIDE TETANUS TOXOID CONJUGATE ANTIGEN
     Indication: PROPHYLAXIS
     Dosage: 0.5 ML, UNK
     Route: 058
     Dates: start: 20180523, end: 20180523
  76. HIRUDOID [Concomitant]
     Active Substance: GLYCOSAMINOGLYCANS
     Indication: PROPHYLAXIS
     Dosage: 1 TO 2 DF
     Route: 061
     Dates: start: 20181023, end: 20181105
  77. ILARIS [Suspect]
     Active Substance: CANAKINUMAB
     Dosage: 22.5 MG, UNK
     Route: 058
     Dates: start: 20170613
  78. ILARIS [Suspect]
     Active Substance: CANAKINUMAB
     Dosage: 58.5 MG, UNK
     Route: 058
     Dates: start: 20180220
  79. ILARIS [Suspect]
     Active Substance: CANAKINUMAB
     Dosage: 66 MG, UNK
     Route: 058
     Dates: start: 20180612
  80. ILARIS [Suspect]
     Active Substance: CANAKINUMAB
     Dosage: 90 MG, UNK
     Route: 058
     Dates: start: 20181113
  81. PREDONINE [Concomitant]
     Active Substance: PREDNISOLONE
     Indication: RESPIRATORY SYNCYTIAL VIRUS BRONCHIOLITIS
     Dosage: 9 MG, QD
     Route: 042
     Dates: start: 20170104, end: 20170108
  82. MUCODYNE [Concomitant]
     Active Substance: CARBOCYSTEINE
     Dosage: 4.5 ML, UNK
     Route: 048
     Dates: start: 20180503, end: 20180509
  83. ASVERIN (TIPEPIDINE HIBENZATE) [Concomitant]
     Active Substance: TIPEPIDINE HIBENZATE
     Dosage: 12 MG, UNK
     Route: 048
     Dates: start: 20181023, end: 20181105
  84. ROCEPHIN [Concomitant]
     Active Substance: CEFTRIAXONE SODIUM
     Dosage: 240 MG, QD
     Route: 042
     Dates: start: 20170302, end: 20170306
  85. ALPINY [Concomitant]
     Active Substance: ACETAMINOPHEN
     Indication: PYREXIA
     Dosage: 50 MG, UNK
     Route: 054
     Dates: start: 20170412, end: 20170412
  86. BRUFEN [Concomitant]
     Active Substance: IBUPROFEN
     Dosage: 100 MG, UNK
     Route: 048
     Dates: start: 20180901, end: 20180904
  87. ILARIS [Suspect]
     Active Substance: CANAKINUMAB
     Indication: CRYOPYRIN ASSOCIATED PERIODIC SYNDROME
     Dosage: 5.5 MG, UNK
     Route: 058
     Dates: start: 20161216
  88. ILARIS [Suspect]
     Active Substance: CANAKINUMAB
     Dosage: 40.5 MG, UNK
     Route: 058
     Dates: start: 20171205
  89. ILARIS [Suspect]
     Active Substance: CANAKINUMAB
     Dosage: 90 MG, UNK
     Route: 058
     Dates: start: 20181204
  90. SYNAGIS [Concomitant]
     Active Substance: PALIVIZUMAB
     Dosage: 50 MG, UNK
     Route: 030
     Dates: start: 20170925, end: 20170925
  91. INCREMIN [Concomitant]
     Active Substance: FERRIC PYROPHOSPHATE
     Indication: ANAEMIA NEONATAL
     Dosage: 2.5 ML, UNK
     Route: 048
     Dates: end: 20170704
  92. ASVERIN (TIPEPIDINE HIBENZATE) [Concomitant]
     Active Substance: TIPEPIDINE HIBENZATE
     Dosage: 3 ML, UNK
     Route: 048
     Dates: start: 20171226, end: 20180102
  93. ONON [Concomitant]
     Active Substance: PRANLUKAST
     Dosage: 50 MG, UNK
     Route: 048
     Dates: start: 20171205
  94. RINDERON [Concomitant]
     Dosage: 6 ML, UNK
     Route: 048
     Dates: start: 20171226, end: 20171229
  95. BRUFEN [Concomitant]
     Active Substance: IBUPROFEN
     Indication: PROPHYLAXIS
     Dosage: 150 MG, UNK
     Route: 048
     Dates: start: 20180117, end: 20180123
  96. BRUFEN [Concomitant]
     Active Substance: IBUPROFEN
     Dosage: 100 MG, UNK
     Route: 048
     Dates: start: 20180609, end: 20180612
  97. ILARIS [Suspect]
     Active Substance: CANAKINUMAB
     Dosage: 7.5 MG, UNK
     Route: 058
     Dates: start: 20170207
  98. ILARIS [Suspect]
     Active Substance: CANAKINUMAB
     Dosage: 9.5 MG, UNK
     Route: 058
     Dates: start: 20170404
  99. ILARIS [Suspect]
     Active Substance: CANAKINUMAB
     Dosage: 10.9 MG, UNK
     Route: 058
     Dates: start: 20170530
  100. ILARIS [Suspect]
     Active Substance: CANAKINUMAB
     Dosage: 37.5 MG, UNK
     Route: 058
     Dates: start: 20171010
  101. ILARIS [Suspect]
     Active Substance: CANAKINUMAB
     Dosage: 40.5 MG, UNK
     Route: 058
     Dates: start: 20171107
  102. ILARIS [Suspect]
     Active Substance: CANAKINUMAB
     Dosage: 55.5 MG, UNK
     Route: 058
     Dates: start: 20171226
  103. ILARIS [Suspect]
     Active Substance: CANAKINUMAB
     Dosage: 88.5 MG, UNK
     Route: 058
     Dates: start: 20181023
  104. PREVNAR 13 [Concomitant]
     Active Substance: PNEUMOCOCCAL 13-VALENT CONJUGATE VACCINE
     Dosage: 0.5 ML, QD
     Route: 058
     Dates: start: 20170410, end: 20170410
  105. SYNAGIS [Concomitant]
     Active Substance: PALIVIZUMAB
     Dosage: 50 MG, UNK
     Route: 030
     Dates: start: 20170131, end: 20170131
  106. PREDNISOLONE. [Concomitant]
     Active Substance: PREDNISOLONE
     Indication: PRODUCT USED FOR UNKNOWN INDICATION
     Dosage: 2.5 MG, UNK
     Route: 048
     Dates: end: 20161220
  107. MUCODYNE [Concomitant]
     Active Substance: CARBOCYSTEINE
     Dosage: 4 ML, UNK
     Route: 048
     Dates: start: 20171226, end: 20180102
  108. MEPTIN [Concomitant]
     Active Substance: PROCATEROL HYDROCHLORIDE
     Indication: RESPIRATORY SYNCYTIAL VIRUS BRONCHIOLITIS
     Dosage: 1.2 ML, QD
     Route: 048
     Dates: start: 20170104, end: 20170117
  109. ONON [Concomitant]
     Active Substance: PRANLUKAST
     Dosage: 40 MG, UNK
     Route: 048
     Dates: start: 20170801, end: 20171204
  110. RINDERON [Concomitant]
     Dosage: 4 ML, UNK
     Route: 048
     Dates: start: 20171121, end: 20171123
  111. OXYGEN. [Concomitant]
     Active Substance: OXYGEN
     Indication: RESPIRATORY SYNCYTIAL VIRUS BRONCHIOLITIS
     Dosage: UNK
     Route: 065
     Dates: start: 20170104, end: 20170110
  112. BRUFEN [Concomitant]
     Active Substance: IBUPROFEN
     Indication: CRYOPYRIN ASSOCIATED PERIODIC SYNDROME
     Dosage: 100 MG, UNK
     Dates: start: 20180413, end: 20180417

REACTIONS (22)
  - Rash [Unknown]
  - Exanthema subitum [Recovering/Resolving]
  - Gingival bleeding [Recovering/Resolving]
  - Asthma [Recovering/Resolving]
  - Viral infection [Unknown]
  - Nasopharyngitis [Unknown]
  - Sneezing [Unknown]
  - Adenovirus infection [Recovering/Resolving]
  - Productive cough [Unknown]
  - Hand-foot-and-mouth disease [Recovering/Resolving]
  - Cough [Unknown]
  - Impetigo [Recovering/Resolving]
  - Aspartate aminotransferase increased [Recovering/Resolving]
  - Upper respiratory tract inflammation [Recovering/Resolving]
  - Wheezing [Unknown]
  - Pyrexia [Unknown]
  - Rhinorrhoea [Unknown]
  - Hepatic function abnormal [Recovering/Resolving]
  - Alanine aminotransferase increased [Recovering/Resolving]
  - Oral mucosal eruption [Unknown]
  - Oral herpes [Recovering/Resolving]
  - Gingival swelling [Recovering/Resolving]

NARRATIVE: CASE EVENT DATE: 20170721
